FAERS Safety Report 14374473 (Version 1)
Quarter: 2018Q1

REPORT INFORMATION
  Report Type: Spontaneous
  Country: CA (occurrence: CA)
  Receive Date: 20180111
  Receipt Date: 20180111
  Transmission Date: 20180509
  Serious: Yes (Hospitalization, Other)
  Sender: FDA-Public Use
  Company Number: CA-SUN PHARMACEUTICAL INDUSTRIES LTD-2017US-141804

PATIENT
  Age: 53 Year
  Sex: Female

DRUGS (4)
  1. ENBREL [Suspect]
     Active Substance: ETANERCEPT
     Indication: RHEUMATOID ARTHRITIS
     Dosage: UNK
     Route: 065
     Dates: start: 20140814
  2. TECTA [Suspect]
     Active Substance: PANTOPRAZOLE MAGNESIUM
     Indication: EPIGASTRIC DISCOMFORT
     Route: 065
  3. METHOTREXATE. [Suspect]
     Active Substance: METHOTREXATE
     Indication: PRODUCT USED FOR UNKNOWN INDICATION
     Dosage: 7.5 MG, 1/WEEK
     Route: 065
     Dates: start: 201704
  4. METHOTREXATE. [Suspect]
     Active Substance: METHOTREXATE
     Dosage: UNK
     Route: 065

REACTIONS (12)
  - Sciatica [Recovering/Resolving]
  - Pancreatitis [Recovering/Resolving]
  - Pancreatolithiasis [Recovering/Resolving]
  - Drug ineffective [Recovering/Resolving]
  - Facial pain [Recovering/Resolving]
  - Joint stiffness [Recovering/Resolving]
  - Epigastric discomfort [Recovering/Resolving]
  - Blood pressure abnormal [Recovering/Resolving]
  - Injury [Recovering/Resolving]
  - Limb injury [Recovering/Resolving]
  - Osteoarthritis [Recovering/Resolving]
  - Carpal tunnel decompression [Recovering/Resolving]

NARRATIVE: CASE EVENT DATE: 201704
